FAERS Safety Report 17191632 (Version 1)
Quarter: 2019Q4

REPORT INFORMATION
  Report Type: Spontaneous
  Country: US (occurrence: US)
  Receive Date: 20191223
  Receipt Date: 20191223
  Transmission Date: 20200122
  Serious: Yes (Other)
  Sender: FDA-Public Use
  Company Number: US-PFIZER INC-2019487081

PATIENT
  Age: 74 Year
  Sex: Male
  Weight: 88 kg

DRUGS (2)
  1. TIKOSYN [Suspect]
     Active Substance: DOFETILIDE
     Dosage: 375 UG, 2X/DAY (3 CAPSULES 2 TIMES A DAY SO 6 A DAY)
  2. TIKOSYN [Suspect]
     Active Substance: DOFETILIDE
     Dosage: 3- 0.125MG PILLS IN THE MORNING AND 3, 0.125MG PILLS AT NIGHT]

REACTIONS (6)
  - Arrhythmia [Not Recovered/Not Resolved]
  - Off label use [Unknown]
  - Oropharyngeal pain [Not Recovered/Not Resolved]
  - Pneumonia [Recovering/Resolving]
  - Chest pain [Not Recovered/Not Resolved]
  - Product use issue [Unknown]

NARRATIVE: CASE EVENT DATE: 20191128
